FAERS Safety Report 12720701 (Version 1)
Quarter: 2016Q3

REPORT INFORMATION
  Report Type: Spontaneous
  Country: BR (occurrence: BR)
  Receive Date: 20160907
  Receipt Date: 20160907
  Transmission Date: 20161109
  Serious: Yes (Other)
  Sender: FDA-Public Use
  Company Number: BR-PFIZER INC-2016416542

PATIENT
  Age: 43 Year
  Sex: Male
  Weight: 70 kg

DRUGS (6)
  1. KEPPRA [Concomitant]
     Active Substance: LEVETIRACETAM
     Indication: ANXIETY
     Dosage: UNK, 2X/DAY
     Route: 048
     Dates: start: 201608
  2. LYRICA [Suspect]
     Active Substance: PREGABALIN
     Dosage: 75 MG, 3X/DAY
     Route: 048
     Dates: start: 2013
  3. TOPAMAX [Concomitant]
     Active Substance: TOPIRAMATE
     Dosage: UNK, 3X/DAY
     Route: 048
     Dates: start: 2009, end: 2010
  4. LITHIUM. [Suspect]
     Active Substance: LITHIUM
     Indication: BIPOLAR DISORDER
  5. ARISTAB [Concomitant]
     Indication: ANXIETY
     Dosage: 1X IN THE DINNER
     Dates: start: 201608
  6. LYRICA [Suspect]
     Active Substance: PREGABALIN
     Indication: RELAXATION THERAPY
     Dosage: 75 MG, 3X/DAY
     Route: 048
     Dates: start: 2009, end: 2010

REACTIONS (5)
  - Depression [Unknown]
  - Product use issue [Unknown]
  - Vomiting [Unknown]
  - Feeling abnormal [Unknown]
  - Drug abuse [Unknown]
